FAERS Safety Report 8979933 (Version 2)
Quarter: 2013Q2

REPORT INFORMATION
  Report Type: Report from Study
  Country: FI (occurrence: FI)
  Receive Date: 20121221
  Receipt Date: 20130429
  Transmission Date: 20140414
  Serious: Yes (Hospitalization, Other)
  Sender: FDA-Public Use
  Company Number: PHHY2012FI116005

PATIENT
  Age: 76 Year
  Sex: Male

DRUGS (22)
  1. LEPONEX [Suspect]
     Indication: HALLUCINATION
     Dosage: 37.5 MG A DAY
     Dates: end: 20130130
  2. DISPERIN//ACETYLSALICYLIC ACID [Concomitant]
     Dosage: 100 MG, TABLET ONCE A DAY
  3. GEFINA [Concomitant]
     Dosage: 5 MG, ONCE A DAY
  4. STALEVO [Concomitant]
     Dosage: 75 MG/18.75 MG/200 MG THREE TIMES A DAY
  5. MELATONIN [Concomitant]
     Dosage: 6 MG,A DAY
  6. TAVANIC [Concomitant]
     Dosage: 50 MG, A DAY
  7. LACTIC ACID [Concomitant]
     Dosage: UNK UKN, UNK
  8. OMEGA-3 FATTY ACIDS [Concomitant]
     Dosage: UNK UKN, UNK
  9. PEGORION [Concomitant]
     Dosage: UNK UKN, UNK
  10. VITAMIN A [Concomitant]
     Dosage: 800 UG, UNK
  11. VITAMIN B-1 [Concomitant]
     Dosage: 1.4 MG, UNK
  12. VITAMIN B2 [Concomitant]
     Dosage: 1.6 MG, UNK
  13. VITAMIN B3 [Concomitant]
     Dosage: 18 MG, UNK
  14. PANTOTHENIC ACID [Concomitant]
     Dosage: 6 MG, UNK
  15. VITAMIN B6 [Concomitant]
     Dosage: 2 MG, UNK
  16. VITAMIN B12 [Concomitant]
     Dosage: 1 UG, UNK
  17. VITAMIIN C [Concomitant]
     Dosage: 60 MG, UNK
  18. VITAMIN D3 [Concomitant]
     Dosage: 5 UG, UNK
  19. VITAMIN E [Concomitant]
     Dosage: 10 MG, UNK
  20. FOLIC ACID [Concomitant]
     Dosage: 200 UG, UNK
  21. ZINC [Concomitant]
     Dosage: 15 MG, UNK
  22. CHROMIUM [Concomitant]
     Dosage: 50 UG, UNK

REACTIONS (8)
  - Hypertonia [Unknown]
  - Tachycardia [Unknown]
  - Confusional state [Unknown]
  - Troponin T increased [Recovered/Resolved]
  - Urinary tract infection [Recovered/Resolved]
  - C-reactive protein increased [Recovered/Resolved]
  - Pyrexia [Recovered/Resolved]
  - Neutrophil count decreased [Unknown]
